FAERS Safety Report 9827365 (Version 2)
Quarter: 2014Q1

REPORT INFORMATION
  Report Type: Spontaneous
  Country: US (occurrence: US)
  Receive Date: 20140117
  Receipt Date: 20140117
  Transmission Date: 20141002
  Serious: Yes (Hospitalization)
  Sender: FDA-Public Use
  Company Number: US-B.I. PHARMACEUTICALS,INC./RIDGEFIELD-2013-BI-23051BP

PATIENT
  Sex: Male
  Weight: 106.59 kg

DRUGS (12)
  1. PRADAXA [Suspect]
     Indication: ATRIAL FIBRILLATION
     Dosage: 300 MG
     Dates: start: 20110514, end: 20120801
  2. SIMVASTATIN [Concomitant]
  3. ROPINIROLE [Concomitant]
  4. POTASSIUM CHLORIDE [Concomitant]
  5. REMERON [Concomitant]
  6. METOPROLOL TARTRATE [Concomitant]
  7. METFORMIN [Concomitant]
  8. PREVACID [Concomitant]
  9. LASIX [Concomitant]
     Dosage: 40 MG
  10. PLETAL [Concomitant]
     Dosage: 100 MG
  11. CHLORTHALIDONE [Concomitant]
     Dosage: 25 MG
  12. AMIODARONE [Concomitant]
     Dosage: 200 MG

REACTIONS (2)
  - Gastrointestinal haemorrhage [Unknown]
  - Normochromic normocytic anaemia [Unknown]
